FAERS Safety Report 9055228 (Version 1)
Quarter: 2013Q1

REPORT INFORMATION
  Report Type: Spontaneous
  Country: IT (occurrence: IT)
  Receive Date: 20130206
  Receipt Date: 20130206
  Transmission Date: 20140127
  Serious: Yes (Hospitalization)
  Sender: FDA-Public Use
  Company Number: IT-ABBOTT-13P-083-1044950-00

PATIENT
  Age: 49 None
  Sex: Female

DRUGS (5)
  1. DEPAKIN [Suspect]
     Indication: POISONING
     Dosage: 4 DOSAGE FORM: TOTAL
     Route: 048
     Dates: start: 20130111, end: 20130111
  2. NEBIVOLOL [Suspect]
     Indication: POISONING
     Dosage: 140 MILLIGRAM (S) ; TOTAL
     Route: 048
     Dates: start: 20130111, end: 20130111
  3. CIPROFLOXACIN [Suspect]
     Indication: POISONING
     Dosage: 2 GRAM (S) ; TOTAL
     Route: 048
     Dates: start: 20130111, end: 20130111
  4. DELAPRIDE [Suspect]
     Indication: POISONING
     Dosage: 56 DOSAGE FORM;TOTAL
     Route: 048
     Dates: start: 20130111, end: 20130111
  5. RIVOTRIL [Concomitant]
     Indication: PRODUCT USED FOR UNKNOWN INDICATION

REACTIONS (5)
  - Toxicity to various agents [Recovered/Resolved]
  - Hypotension [Recovered/Resolved]
  - Coma scale abnormal [Recovered/Resolved]
  - Somnolence [Recovered/Resolved]
  - Disorientation [Recovered/Resolved]
